FAERS Safety Report 21067324 (Version 2)
Quarter: 2024Q3

REPORT INFORMATION
  Report Type: Report from Study
  Country: US (occurrence: US)
  Receive Date: 20220712
  Receipt Date: 20240801
  Transmission Date: 20241017
  Serious: Yes (Death)
  Sender: RECORDATI
  Company Number: US-RECORDATI-2022002006

PATIENT

DRUGS (5)
  1. ISTURISA [Suspect]
     Active Substance: OSILODROSTAT PHOSPHATE
     Indication: Pituitary-dependent Cushing^s syndrome
     Dosage: 10 MILLIGRAM, BID
     Route: 048
     Dates: start: 20220304, end: 2022
  2. ISTURISA [Suspect]
     Active Substance: OSILODROSTAT PHOSPHATE
     Dosage: 5 MILLIGRAM, BID
     Route: 048
     Dates: start: 2022, end: 20220707
  3. LISINOPRIL [Concomitant]
     Active Substance: LISINOPRIL
     Indication: Hypertension
     Dosage: 20 MILLIGRAM
     Route: 065
  4. LEVOFLOXACIN [Concomitant]
     Active Substance: LEVOFLOXACIN
     Indication: Prophylaxis
     Dosage: 40 MG/0.4 ML
     Route: 058
  5. ETOMIDATE [Concomitant]
     Active Substance: ETOMIDATE
     Indication: Induction of anaesthesia
     Dosage: 2 MG/ML
     Route: 042

REACTIONS (2)
  - Death [Fatal]
  - Herpes zoster [Recovering/Resolving]

NARRATIVE: CASE EVENT DATE: 20220301
